FAERS Safety Report 13507146 (Version 1)
Quarter: 2017Q2

REPORT INFORMATION
  Report Type: Spontaneous
  Country: AU (occurrence: AU)
  Receive Date: 20170503
  Receipt Date: 20170503
  Transmission Date: 20170830
  Serious: Yes (Hospitalization)
  Sender: FDA-Public Use
  Company Number: AU-ASTRAZENECA-2017SE45099

PATIENT
  Age: 29 Year
  Sex: Male

DRUGS (5)
  1. STRIBILD [Interacting]
     Active Substance: COBICISTAT\ELVITEGRAVIR\EMTRICITABINE\TENOFOVIR DISOPROXIL FUMARATE
     Indication: HIV TEST POSITIVE
     Route: 065
  2. METAMFETAMINE [Suspect]
     Active Substance: METHAMPHETAMINE
     Dosage: UNKNOWN AMOUNTS
     Route: 042
  3. LITHIUM. [Suspect]
     Active Substance: LITHIUM
     Dosage: UNKNOWN AMOUNTS
     Route: 065
  4. QUETIAPINE. [Suspect]
     Active Substance: QUETIAPINE
     Dosage: 4.5G ONCE/SINGLE ADMINISTRATION
     Route: 048
  5. 4-AMINO-3-HYDROXYBUTYRIC ACID [Suspect]
     Active Substance: 4-HYDROXYBUTANOIC ACID
     Dosage: UNKNOWN AMOUNTS
     Route: 048

REACTIONS (5)
  - Sinus tachycardia [Recovered/Resolved]
  - Overdose [Recovered/Resolved]
  - Drug interaction [Unknown]
  - Somnolence [Recovered/Resolved]
  - Coma [Recovered/Resolved]
